FAERS Safety Report 5100058-0 (Version None)
Quarter: 2006Q3

REPORT INFORMATION
  Report Type: 
  Country: None (occurrence: None)
  Receive Date: 20060906
  Receipt Date: 20060822
  Transmission Date: 20061208
  Serious: Yes (Other)
  Sender: FDA-Public Use
  Company Number: PHBS2006US12704

PATIENT
  Age: 24 Year
  Sex: Female
  Weight: 47.6 kg

DRUGS (8)
  1. CYCLOSPORINE [Suspect]
     Indication: RENAL TRANSPLANT
     Dosage: 100 MG, BID
  2. PREDNISONE TAB [Suspect]
     Indication: RENAL TRANSPLANT
     Dosage: 10 MG/D
  3. MYCOPHENOLATE MOFETIL [Concomitant]
  4. ENALAPRIL [Concomitant]
  5. CYSTEAMINE (MERCAPTAMINE) [Concomitant]
  6. ESOMEPRAZOLE MAGNESIUM [Concomitant]
  7. SODIUM CITRATE [Concomitant]
  8. MULTIVITAMINS (ASCORBIC ACID, ERGOCALCIFEROL, FOLIC ACID, NICOTINAMIDE [Concomitant]

REACTIONS (14)
  - ACIDOSIS HYPERCHLORAEMIC [None]
  - BIOPSY KIDNEY ABNORMAL [None]
  - BLOOD CHLORIDE INCREASED [None]
  - BLOOD MAGNESIUM DECREASED [None]
  - CARBON DIOXIDE DECREASED [None]
  - CHRONIC ALLOGRAFT NEPHROPATHY [None]
  - DRUG TOXICITY [None]
  - HAEMATOCRIT DECREASED [None]
  - HYPOPHOSPHATAEMIA [None]
  - KIDNEY FIBROSIS [None]
  - METABOLIC ACIDOSIS [None]
  - RENAL ATROPHY [None]
  - RENAL FAILURE [None]
  - TRANSPLANT FAILURE [None]
